FAERS Safety Report 17093410 (Version 2)
Quarter: 2019Q4

REPORT INFORMATION
  Report Type: Spontaneous
  Country: IT (occurrence: IT)
  Receive Date: 20191129
  Receipt Date: 20191227
  Transmission Date: 20200122
  Serious: Yes (Death)
  Sender: FDA-Public Use
  Company Number: IT-ASTRAZENECA-2019SF70664

PATIENT
  Age: 80 Year
  Sex: Female

DRUGS (6)
  1. KARVEA [Concomitant]
     Active Substance: IRBESARTAN
  2. ZYLORIC [Concomitant]
     Active Substance: ALLOPURINOL
  3. LIXIANA [Concomitant]
     Active Substance: EDOXABAN TOSYLATE
  4. TAPAZOLE [Concomitant]
     Active Substance: METHIMAZOLE
  5. LOBIVON [Concomitant]
     Active Substance: NEBIVOLOL HYDROCHLORIDE
  6. TAGRISSO [Suspect]
     Active Substance: OSIMERTINIB
     Indication: NON-SMALL CELL LUNG CANCER STAGE IV
     Route: 048
     Dates: start: 20190930, end: 20191016

REACTIONS (1)
  - Metastases to central nervous system [Fatal]
